FAERS Safety Report 17441410 (Version 1)
Quarter: 2020Q1

REPORT INFORMATION
  Report Type: Spontaneous
  Country: FR (occurrence: FR)
  Receive Date: 20200220
  Receipt Date: 20200220
  Transmission Date: 20200409
  Serious: Yes (Other)
  Sender: FDA-Public Use
  Company Number: FR-SA-2020SA044115

PATIENT
  Age: 79 Year
  Sex: Male

DRUGS (4)
  1. PAROXETINE HYDROCHLORIDE. [Concomitant]
     Active Substance: PAROXETINE HYDROCHLORIDE
     Route: 048
     Dates: start: 20190514, end: 20190715
  2. RIFADINE [Suspect]
     Active Substance: RIFAMPIN
     Indication: ENDOCARDITIS
     Route: 048
     Dates: start: 20190520, end: 20190704
  3. MIRTAZAPINE. [Concomitant]
     Active Substance: MIRTAZAPINE
     Route: 048
     Dates: start: 20190715
  4. AMOXICILLIN TRIHYDRATE [Concomitant]
     Active Substance: AMOXICILLIN
     Route: 048
     Dates: start: 20190520, end: 20190820

REACTIONS (1)
  - Depression [Recovered/Resolved]

NARRATIVE: CASE EVENT DATE: 201906
